FAERS Safety Report 5678584-5 (Version None)
Quarter: 2008Q1

REPORT INFORMATION
  Report Type: 
  Country: None (occurrence: None)
  Receive Date: 20080320
  Receipt Date: 20080306
  Transmission Date: 20080703
  Serious: Yes (Hospitalization)
  Sender: FDA-Public Use
  Company Number: DSA_31597_2008

PATIENT
  Sex: Female

DRUGS (3)
  1. CARDIZEM [Suspect]
     Indication: DRUG USE FOR UNKNOWN INDICATION
     Dosage: (DF)
  2. LYRICA [Suspect]
     Indication: POST HERPETIC NEURALGIA
     Dosage: (75 MG QD)
  3. GLUCOPHAGE XR [Concomitant]

REACTIONS (5)
  - ABDOMINAL PAIN UPPER [None]
  - BLOOD PRESSURE FLUCTUATION [None]
  - CLUSTER HEADACHE [None]
  - NAUSEA [None]
  - OEDEMA PERIPHERAL [None]
